FAERS Safety Report 5254792-2 (Version None)
Quarter: 2007Q1

REPORT INFORMATION
  Report Type: 
  Country: None (occurrence: None)
  Receive Date: 20070305
  Receipt Date: 20070223
  Transmission Date: 20070707
  Serious: Yes (Other)
  Sender: FDA-Public Use
  Company Number: GB-JNJFOC-20070206472

PATIENT
  Sex: Female

DRUGS (2)
  1. RISPERDAL CONSTA [Suspect]
     Indication: DRUG USE FOR UNKNOWN INDICATION
     Route: 030
  2. LITHIUM CARBONATE [Concomitant]

REACTIONS (3)
  - BLOOD PROLACTIN INCREASED [None]
  - HALLUCINATION, AUDITORY [None]
  - SELF INJURIOUS BEHAVIOUR [None]
